FAERS Safety Report 7970665-6 (Version None)
Quarter: 2011Q4

REPORT INFORMATION
  Report Type: 
  Country: None (occurrence: None)
  Receive Date: 20111212
  Receipt Date: 20111206
  Transmission Date: 20120403
  Serious: Yes (Other)
  Sender: FDA-Public Use
  Company Number: GXKR2011DE003541

PATIENT
  Age: 86 Year
  Sex: Female

DRUGS (2)
  1. METFORMIN HCL [Suspect]
     Dosage: 500 MG, QD
     Route: 048
  2. MARCUMAR [Concomitant]
     Route: 048

REACTIONS (1)
  - GASTRIC HAEMORRHAGE [None]
